FAERS Safety Report 20910219 (Version 1)
Quarter: 2022Q2

REPORT INFORMATION
  Report Type: Spontaneous
  Country: CA (occurrence: None)
  Receive Date: 20220603
  Receipt Date: 20220603
  Transmission Date: 20220721
  Serious: Yes (Other)
  Sender: FDA-Public Use
  Company Number: CA-PFIZER INC-202200765392

PATIENT
  Age: 46 Year
  Sex: Female
  Weight: 83.9 kg

DRUGS (1)
  1. METHOTREXATE [Suspect]
     Active Substance: METHOTREXATE
     Indication: Product used for unknown indication
     Route: 065

REACTIONS (5)
  - Rheumatoid arthritis [Unknown]
  - Drug ineffective [Unknown]
  - Pain [Unknown]
  - Swelling [Unknown]
  - Herpes zoster [Unknown]

NARRATIVE: CASE EVENT DATE: 20220401
